FAERS Safety Report 6008781-0 (Version None)
Quarter: 2008Q4

REPORT INFORMATION
  Report Type: 
  Country: None (occurrence: None)
  Receive Date: 20081217
  Receipt Date: 20080903
  Transmission Date: 20090506
  Serious: No
  Sender: FDA-Public Use
  Company Number: US-AMGEN-KDL305438

PATIENT
  Sex: Male

DRUGS (6)
  1. ARANESP [Suspect]
     Indication: DRUG USE FOR UNKNOWN INDICATION
     Route: 058
     Dates: start: 20080818
  2. ASPIRIN [Concomitant]
  3. FERROUS SULFATE TAB [Concomitant]
  4. DILTIAZEM [Concomitant]
  5. METOPROLOL TARTRATE [Concomitant]
  6. PRAVASTATIN [Concomitant]

REACTIONS (1)
  - RASH [None]
